FAERS Safety Report 6997484-1 (Version None)
Quarter: 2010Q3

REPORT INFORMATION
  Report Type: 
  Country: None (occurrence: None)
  Receive Date: 20100918
  Receipt Date: 20091021
  Transmission Date: 20110219
  Serious: No
  Sender: FDA-Public Use
  Company Number: US-WYE-H11817309

PATIENT
  Sex: Female

DRUGS (3)
  1. PRISTIQ [Suspect]
     Indication: STRESS
     Route: 048
     Dates: start: 20090801, end: 20091001
  2. PRISTIQ [Suspect]
     Route: 048
     Dates: start: 20091001, end: 20091001
  3. PRISTIQ [Suspect]
     Route: 048
     Dates: start: 20091001, end: 20091001

REACTIONS (3)
  - CRYING [None]
  - IRRITABILITY [None]
  - MOOD SWINGS [None]
